FAERS Safety Report 7609268-1 (Version None)
Quarter: 2011Q3

REPORT INFORMATION
  Report Type: 
  Country: None (occurrence: None)
  Receive Date: 20110706
  Receipt Date: 20110621
  Transmission Date: 20111222
  Serious: Yes (Death, Hospitalization, Other)
  Sender: FDA-Public Use
  Company Number: 2011FR0041

PATIENT
  Age: 5 Year

DRUGS (2)
  1. ORFADIN [Suspect]
     Indication: TYROSINAEMIA
     Dates: start: 20051203
  2. VENOFER [Suspect]
     Indication: ANAEMIA
     Dosage: 21,4286 MG (50 MG, 3 IN 1 WK), INTRAVENOUS
     Route: 042
     Dates: start: 20101001

REACTIONS (10)
  - INSOMNIA [None]
  - NERVOUS SYSTEM DISORDER [None]
  - HAEMORRHAGE [None]
  - SPLENOMEGALY [None]
  - IRON DEFICIENCY ANAEMIA [None]
  - MULTI-ORGAN FAILURE [None]
  - CONSTIPATION [None]
  - VOMITING [None]
  - DIARRHOEA [None]
  - HAEMANGIOMA [None]
